FAERS Safety Report 26020516 (Version 1)
Quarter: 2025Q4

REPORT INFORMATION
  Report Type: Spontaneous
  Country: US (occurrence: None)
  Receive Date: 20251107
  Receipt Date: 20251107
  Transmission Date: 20260118
  Serious: No
  Sender: FDA-CTU
  Company Number: None

PATIENT
  Age: 9 Year
  Sex: Male

DRUGS (1)
  1. VIGABATRIN [Suspect]
     Active Substance: VIGABATRIN
     Indication: Infantile spasms
     Dosage: FREQUENCY : DAILY;?
     Route: 048
     Dates: start: 20191121

REACTIONS (1)
  - Pneumonia aspiration [None]

NARRATIVE: CASE EVENT DATE: 20251020
